FAERS Safety Report 24331476 (Version 2)
Quarter: 2024Q4

REPORT INFORMATION
  Report Type: Report from Study
  Country: US (occurrence: US)
  Receive Date: 20240918
  Receipt Date: 20241016
  Transmission Date: 20250115
  Serious: Yes (Other)
  Sender: ALEXION PHARMACEUTICALS
  Company Number: 2024A213221

PATIENT

DRUGS (8)
  1. FARXIGA [Suspect]
     Active Substance: DAPAGLIFLOZIN PROPANEDIOL
  2. FARXIGA [Suspect]
     Active Substance: DAPAGLIFLOZIN PROPANEDIOL
  3. FARXIGA [Suspect]
     Active Substance: DAPAGLIFLOZIN PROPANEDIOL
  4. FARXIGA [Suspect]
     Active Substance: DAPAGLIFLOZIN PROPANEDIOL
  5. BRILINTA [Suspect]
     Active Substance: TICAGRELOR
  6. BRILINTA [Suspect]
     Active Substance: TICAGRELOR
  7. BRILINTA [Suspect]
     Active Substance: TICAGRELOR
  8. BRILINTA [Suspect]
     Active Substance: TICAGRELOR

REACTIONS (1)
  - Myocardial infarction [Unknown]
